FAERS Safety Report 25623972 (Version 1)
Quarter: 2025Q3

REPORT INFORMATION
  Report Type: Spontaneous
  Country: US (occurrence: US)
  Receive Date: 20250730
  Receipt Date: 20250730
  Transmission Date: 20251021
  Serious: No
  Sender: SANOFI AVENTIS
  Company Number: US-SA-2025SA220317

PATIENT
  Age: 71 Year
  Sex: Male
  Weight: 92.07 kg

DRUGS (30)
  1. KEVZARA [Suspect]
     Active Substance: SARILUMAB
     Indication: Psoriatic arthropathy
     Dosage: 200 MG, QOW
     Route: 058
  2. KEVZARA [Suspect]
     Active Substance: SARILUMAB
     Indication: Polymyalgia rheumatica
  3. GAMMAGARD [Suspect]
     Active Substance: HUMAN IMMUNOGLOBULIN G
     Route: 042
  4. DIPHENHYDRAMINE HYDROCHLORIDE [Concomitant]
     Active Substance: DIPHENHYDRAMINE HYDROCHLORIDE
  5. LIDOCAINE [Concomitant]
     Active Substance: LIDOCAINE
  6. ACETAMINOPHEN [Concomitant]
     Active Substance: ACETAMINOPHEN
  7. DOXEPIN HYDROCHLORIDE [Concomitant]
     Active Substance: DOXEPIN HYDROCHLORIDE
  8. PREDNISONE [Concomitant]
     Active Substance: PREDNISONE
  9. ZANAFLEX [Concomitant]
     Active Substance: TIZANIDINE HYDROCHLORIDE
  10. HUMALOG [Concomitant]
     Active Substance: INSULIN LISPRO
  11. ADVIL DUAL ACTION WITH ACETAMINOPHEN [Concomitant]
     Active Substance: ACETAMINOPHEN\IBUPROFEN
  12. GABAPENTIN [Concomitant]
     Active Substance: GABAPENTIN
  13. LASIX [Concomitant]
     Active Substance: FUROSEMIDE
  14. GLYCOPYRROLATE [Concomitant]
     Active Substance: GLYCOPYRROLATE
  15. IBUPROFEN [Concomitant]
     Active Substance: IBUPROFEN
  16. FINASTERIDE [Concomitant]
     Active Substance: FINASTERIDE
  17. POTASSIUM CHLORIDE [Concomitant]
     Active Substance: POTASSIUM CHLORIDE
  18. SODIUM CHLORIDE [Concomitant]
     Active Substance: SODIUM CHLORIDE
  19. LIDOCAINE\PRILOCAINE [Concomitant]
     Active Substance: LIDOCAINE\PRILOCAINE
  20. DIPHENHYDRAMINE [Concomitant]
     Active Substance: DIPHENHYDRAMINE
  21. SODIUM CHLORIDE [Concomitant]
     Active Substance: SODIUM CHLORIDE
  22. HEPARIN [Concomitant]
     Active Substance: HEPARIN SODIUM
  23. EPINEPHRINE [Concomitant]
     Active Substance: EPINEPHRINE
  24. OTEZLA [Concomitant]
     Active Substance: APREMILAST
  25. TYLENOL 8HR [Concomitant]
     Active Substance: ACETAMINOPHEN
  26. THERA-M [Concomitant]
  27. OXYGEN [Concomitant]
     Active Substance: OXYGEN
  28. HYZAAR [Concomitant]
     Active Substance: HYDROCHLOROTHIAZIDE\LOSARTAN POTASSIUM
  29. COREG [Concomitant]
     Active Substance: CARVEDILOL
  30. MESTINON [Concomitant]
     Active Substance: PYRIDOSTIGMINE BROMIDE

REACTIONS (4)
  - Tooth extraction [Unknown]
  - Device related infection [Unknown]
  - Headache [Recovered/Resolved]
  - Product use in unapproved indication [Unknown]

NARRATIVE: CASE EVENT DATE: 20250401
